FAERS Safety Report 10240720 (Version 2)
Quarter: 2014Q4

REPORT INFORMATION
  Report Type: Spontaneous
  Country: US (occurrence: US)
  Receive Date: 20140617
  Receipt Date: 20141113
  Transmission Date: 20150528
  Serious: Yes (Other)
  Sender: FDA-Public Use
  Company Number: US-ASTRAZENECA-2014SE40652

PATIENT
  Age: 934 Month
  Sex: Male
  Weight: 77.1 kg

DRUGS (6)
  1. FASLODEX [Suspect]
     Active Substance: FULVESTRANT
     Indication: BREAST CANCER MALE
     Route: 030
     Dates: start: 201406
  2. DIAZAPAM [Concomitant]
     Indication: MIGRAINE
     Dates: start: 2004
  3. ELAVIL [Concomitant]
     Active Substance: AMITRIPTYLINE HYDROCHLORIDE
     Indication: MIGRAINE
     Dates: start: 2004
  4. UNDESCRIBED ALTERNATIVE MEDICATIONS [Concomitant]
     Dosage: NOT REPORTED DAILY
  5. TAMOXIFEN [Suspect]
     Active Substance: TAMOXIFEN
     Indication: BREAST CANCER MALE
     Route: 048
     Dates: start: 201305, end: 201405
  6. ERGOT DERIVATIVE [Concomitant]
     Indication: MIGRAINE
     Dosage: UNKNOWN TID
     Dates: start: 2004

REACTIONS (3)
  - Prostatic specific antigen increased [Unknown]
  - Product use issue [Not Recovered/Not Resolved]
  - Bone cancer metastatic [Not Recovered/Not Resolved]

NARRATIVE: CASE EVENT DATE: 201405
